FAERS Safety Report 8220856-4 (Version None)
Quarter: 2012Q1

REPORT INFORMATION
  Report Type: 
  Country: None (occurrence: None)
  Receive Date: 20120320
  Receipt Date: 20120312
  Transmission Date: 20120608
  Serious: Yes (Death, Life-Threatening, Hospitalization)
  Sender: FDA-Public Use
  Company Number: FR-SANOFI-AVENTIS-2012SA010944

PATIENT
  Age: 68 Year
  Sex: Female

DRUGS (15)
  1. FASTURTEC [Suspect]
     Route: 065
     Dates: start: 20111228
  2. HYDREA [Suspect]
     Route: 065
     Dates: start: 20111226, end: 20111228
  3. METOCLOPRAMIDE [Concomitant]
  4. VANCOMYCIN [Suspect]
     Route: 065
     Dates: start: 20120105
  5. LEVOFLOXACIN [Suspect]
     Route: 065
     Dates: start: 20111229
  6. CYTARABINE [Suspect]
     Route: 065
     Dates: start: 20111228
  7. EMEND [Suspect]
     Route: 065
     Dates: start: 20111229
  8. ZOFRAN [Concomitant]
  9. NOXAFIL [Concomitant]
  10. VALACICLOVIR [Suspect]
     Route: 065
     Dates: start: 20111228
  11. CYTARABINE [Suspect]
     Route: 065
  12. PIPERACILLIN AND TAZOBACTAM [Suspect]
     Route: 065
     Dates: start: 20111228, end: 20120104
  13. AMIODARONE HYDROCHLORIDE [Suspect]
     Route: 042
     Dates: start: 20111230
  14. IDARUBICIN HCL [Suspect]
     Route: 065
     Dates: start: 20111228
  15. ZYVOX [Suspect]
     Route: 065
     Dates: start: 20111230

REACTIONS (6)
  - TOXIC SKIN ERUPTION [None]
  - BONE MARROW FAILURE [None]
  - SEPTIC SHOCK [None]
  - RENAL FAILURE ACUTE [None]
  - GASTROINTESTINAL NECROSIS [None]
  - INTESTINAL ISCHAEMIA [None]
